FAERS Safety Report 4583568-4 (Version None)
Quarter: 2005Q2

REPORT INFORMATION
  Report Type: 
  Country: None (occurrence: None)
  Receive Date: 20050125
  Receipt Date: 20041011
  Transmission Date: 20051028
  Serious: No
  Sender: FDA-Public Use
  Company Number: USA041080782

PATIENT
  Sex: Female
  Weight: 68 kg

DRUGS (8)
  1. FORTEO [Suspect]
     Dosage: 20 UG/1 DAY
     Dates: start: 20040101
  2. CALCIUM GLUCONATE [Concomitant]
  3. NITROFURANTOIN [Concomitant]
  4. DETROL LA (TOLTERODIINE L-TARTRATE) [Concomitant]
  5. IMIPRAM TAB [Concomitant]
  6. HYZAAR [Concomitant]
  7. ATENOLOL [Concomitant]
  8. LIPITOR [Concomitant]

REACTIONS (5)
  - ASTHENIA [None]
  - DIFFICULTY IN WALKING [None]
  - GRIP STRENGTH DECREASED [None]
  - MOBILITY DECREASED [None]
  - MUSCLE SPASMS [None]
